FAERS Safety Report 6847850-X (Version None)
Quarter: 2010Q3

REPORT INFORMATION
  Report Type: 
  Country: None (occurrence: None)
  Receive Date: 20100716
  Receipt Date: 20100607
  Transmission Date: 20110219
  Serious: Yes (Death, Hospitalization, Other)
  Sender: FDA-Public Use
  Company Number: US-BAXTER-2010BH002997

PATIENT
  Age: 38 Year
  Sex: Male
  Weight: 118 kg

DRUGS (32)
  1. HEPARIN SODIUM [Suspect]
     Indication: HAEMODIALYSIS
     Route: 042
     Dates: start: 20080129, end: 20080129
  2. HEPARIN SODIUM [Suspect]
     Indication: THROMBOLYSIS
     Route: 042
     Dates: start: 20080129, end: 20080129
  3. HEPARIN SODIUM [Suspect]
     Route: 042
     Dates: start: 20080130, end: 20080130
  4. HEPARIN SODIUM [Suspect]
     Route: 042
     Dates: start: 20080130, end: 20080130
  5. HEPARIN SODIUM [Suspect]
     Route: 065
     Dates: start: 20080128, end: 20080131
  6. HEPARIN SODIUM [Suspect]
     Route: 065
     Dates: start: 20080128, end: 20080131
  7. HEPARIN SODIUM [Suspect]
     Route: 042
     Dates: start: 20080131, end: 20080131
  8. HEPARIN SODIUM [Suspect]
     Route: 042
     Dates: start: 20080131, end: 20080131
  9. HEPARIN SODIUM [Suspect]
     Route: 041
     Dates: start: 20080128
  10. HEPARIN SODIUM [Suspect]
     Route: 041
     Dates: start: 20080128
  11. HEPARIN SODIUM [Suspect]
     Route: 042
     Dates: start: 20080131, end: 20080131
  12. HEPARIN SODIUM [Suspect]
     Route: 042
     Dates: start: 20080131, end: 20080131
  13. HEPARIN SODIUM [Suspect]
     Route: 042
     Dates: start: 20080121, end: 20080123
  14. HEPARIN SODIUM [Suspect]
     Route: 042
     Dates: start: 20080121, end: 20080123
  15. HEPARIN SODIUM 10,000 UNITS IN SODIUM CHLORIDE 0.45% [Suspect]
     Indication: THROMBOLYSIS
     Route: 041
     Dates: start: 20080129, end: 20080131
  16. ALTEPLASE [Suspect]
     Indication: THROMBOLYSIS
     Route: 042
     Dates: start: 20080128, end: 20080129
  17. NIFEDIPINE [Concomitant]
     Indication: PRODUCT USED FOR UNKNOWN INDICATION
     Route: 065
  18. SODIUM BICARBONATE [Concomitant]
     Indication: PRODUCT USED FOR UNKNOWN INDICATION
     Route: 065
  19. PHOSLO [Concomitant]
     Indication: PRODUCT USED FOR UNKNOWN INDICATION
     Route: 065
  20. ALLOPURINOL [Concomitant]
     Indication: PRODUCT USED FOR UNKNOWN INDICATION
     Route: 065
  21. CLONIDINE HYDROCHLORIDE [Concomitant]
     Indication: PRODUCT USED FOR UNKNOWN INDICATION
     Route: 065
  22. LASIX [Concomitant]
     Indication: PRODUCT USED FOR UNKNOWN INDICATION
     Route: 065
  23. SIMVASTATIN [Concomitant]
     Indication: PRODUCT USED FOR UNKNOWN INDICATION
     Route: 065
  24. TOPROL-XL [Concomitant]
     Indication: PRODUCT USED FOR UNKNOWN INDICATION
     Route: 065
  25. NEPHROCAPS [Concomitant]
     Indication: PRODUCT USED FOR UNKNOWN INDICATION
     Route: 048
  26. CALCITRIOL [Concomitant]
     Indication: PRODUCT USED FOR UNKNOWN INDICATION
     Route: 065
  27. FOLIC ACID [Concomitant]
     Indication: PRODUCT USED FOR UNKNOWN INDICATION
     Route: 065
  28. TEMAZEPAM [Concomitant]
     Indication: PRODUCT USED FOR UNKNOWN INDICATION
     Route: 065
  29. NEO-SYNEPHRINOL [Concomitant]
     Indication: PRODUCT USED FOR UNKNOWN INDICATION
     Route: 065
  30. XANAX [Concomitant]
     Indication: PRODUCT USED FOR UNKNOWN INDICATION
     Route: 065
  31. LIDOCAINE HCL IN 5% DEXTROSE INJECTION IN PLASTIC CONTAINER [Concomitant]
     Indication: PRODUCT USED FOR UNKNOWN INDICATION
     Route: 065
  32. ASPIRIN [Concomitant]
     Indication: PRODUCT USED FOR UNKNOWN INDICATION
     Route: 065

REACTIONS (8)
  - ANEURYSM ARTERIOVENOUS [None]
  - ARTERIAL THROMBOSIS LIMB [None]
  - CARDIAC ARREST [None]
  - HAEMODYNAMIC INSTABILITY [None]
  - HYPOTENSION [None]
  - MYOCARDIAL INFARCTION [None]
  - RESPIRATORY ARREST [None]
  - VASCULAR PSEUDOANEURYSM [None]
